FAERS Safety Report 12296728 (Version 1)
Quarter: 2016Q2

REPORT INFORMATION
  Report Type: Spontaneous
  Country: CA (occurrence: CA)
  Receive Date: 20160422
  Receipt Date: 20160422
  Transmission Date: 20160815
  Serious: Yes (Hospitalization)
  Sender: FDA-Public Use
  Company Number: PHHY2016CA052185

PATIENT
  Age: 16 Year
  Sex: Male

DRUGS (2)
  1. DEFERASIROX [Suspect]
     Active Substance: DEFERASIROX
     Indication: CHELATION THERAPY
     Dosage: 30 MG/KG, QD
     Route: 048
  2. DEFERASIROX [Suspect]
     Active Substance: DEFERASIROX
     Dosage: 45 MG/KG, UNK
     Route: 048

REACTIONS (9)
  - Myalgia [Recovered/Resolved]
  - Fatigue [Recovered/Resolved]
  - Hypokalaemia [Recovered/Resolved]
  - Metabolic acidosis [Recovered/Resolved]
  - Hypophosphataemia [Recovered/Resolved]
  - Vomiting [Recovered/Resolved]
  - Fanconi syndrome acquired [Recovered/Resolved]
  - Decreased appetite [Recovered/Resolved]
  - Diarrhoea [Recovered/Resolved]
